FAERS Safety Report 19330097 (Version 1)
Quarter: 2021Q2

REPORT INFORMATION
  Report Type: Spontaneous
  Country: JP (occurrence: JP)
  Receive Date: 20210528
  Receipt Date: 20210528
  Transmission Date: 20210717
  Serious: Yes (Other)
  Sender: FDA-Public Use
  Company Number: JP-PFIZER INC-2021549814

PATIENT
  Age: 61 Year
  Sex: Female
  Weight: 55.6 kg

DRUGS (3)
  1. PACLITAXEL HOSPIRA [Suspect]
     Active Substance: PACLITAXEL
     Indication: OVARIAN CANCER
     Dosage: 275.4 MG, DAILY
     Route: 041
     Dates: start: 20210507, end: 20210507
  2. POLYOXYL 35 CASTOR OIL [Suspect]
     Active Substance: POLYOXYL 35 CASTOR OIL
     Indication: OVARIAN CANCER
     Dosage: UNK, DAILY
     Route: 041
     Dates: start: 20210507, end: 20210507
  3. ALOXI [Suspect]
     Active Substance: PALONOSETRON HYDROCHLORIDE
     Indication: PROPHYLAXIS OF NAUSEA AND VOMITING
     Dosage: 0.75 MG, DAILY
     Route: 041
     Dates: start: 20210507, end: 20210507

REACTIONS (2)
  - Reaction to excipient [Recovered/Resolved]
  - Anaphylactic reaction [Recovered/Resolved]

NARRATIVE: CASE EVENT DATE: 20210507
